FAERS Safety Report 8956721 (Version 2)
Quarter: 2014Q2

REPORT INFORMATION
  Report Type: Report from Study
  Country: AU (occurrence: AU)
  Receive Date: 20121210
  Receipt Date: 20140609
  Transmission Date: 20141212
  Serious: Yes (Other)
  Sender: FDA-Public Use
  Company Number: AU-ROCHE-1165134

PATIENT
  Age: 74 Year
  Sex: Female

DRUGS (4)
  1. METHOXY POLYETHYLENE GLYCOL-EPOETIN BETA [Suspect]
     Indication: NEPHROGENIC ANAEMIA
     Route: 058
     Dates: start: 20090901, end: 20111216
  2. SIMVASTATIN [Concomitant]
  3. TOPROL [Concomitant]
  4. ASPIRIN [Concomitant]

REACTIONS (3)
  - Chest pain [Recovering/Resolving]
  - Fluid overload [Recovering/Resolving]
  - Troponin increased [Recovering/Resolving]
